FAERS Safety Report 5489217-5 (Version None)
Quarter: 2007Q4

REPORT INFORMATION
  Report Type: 
  Country: None (occurrence: None)
  Receive Date: 20071016
  Receipt Date: 20071010
  Transmission Date: 20080405
  Serious: Yes (Death, Other)
  Sender: FDA-Public Use
  Company Number: 163-20785-07090168

PATIENT
  Age: 78 Year
  Sex: Male

DRUGS (3)
  1. THALOMID [Suspect]
     Indication: MULTIPLE MYELOMA
     Dosage: 100MG - 200MG, DAILY, ORAL
     Route: 048
     Dates: start: 20070426, end: 20070101
  2. COMBIVENT [Concomitant]
  3. DECADRON [Concomitant]

REACTIONS (6)
  - CHRONIC OBSTRUCTIVE PULMONARY DISEASE [None]
  - DISEASE PROGRESSION [None]
  - MULTIPLE MYELOMA [None]
  - PLASMACYTOSIS [None]
  - PNEUMONIA [None]
  - RESPIRATORY DISORDER [None]
